FAERS Safety Report 8255964-5 (Version None)
Quarter: 2012Q2

REPORT INFORMATION
  Report Type: 
  Country: None (occurrence: None)
  Receive Date: 20120403
  Receipt Date: 20120322
  Transmission Date: 20120825
  Serious: Yes (Death)
  Sender: FDA-Public Use
  Company Number: RO-ROCHE-1051443

PATIENT
  Sex: Female
  Weight: 50 kg

DRUGS (4)
  1. RITUXIMAB [Suspect]
     Indication: RHEUMATOID ARTHRITIS
     Dosage: 500MG X 2/2 SAPT
     Route: 042
     Dates: start: 20111104, end: 20120309
  2. ALFACALCIDOL [Concomitant]
     Indication: OSTEOPOROSIS
     Route: 048
  3. LEVOTHYROXINE SODIUM [Concomitant]
     Indication: BASEDOW'S DISEASE
     Route: 048
  4. METHOTREXATE [Concomitant]
     Indication: RHEUMATOID ARTHRITIS
     Route: 048

REACTIONS (1)
  - SUDDEN DEATH [None]
